FAERS Safety Report 7118863-8 (Version None)
Quarter: 2010Q4

REPORT INFORMATION
  Report Type: 
  Country: None (occurrence: None)
  Receive Date: 20101123
  Receipt Date: 20100902
  Transmission Date: 20110411
  Serious: No
  Sender: FDA-Public Use
  Company Number: US-KINGPHARMUSA00001-K201001108

PATIENT
  Age: 82 Year
  Sex: Female
  Weight: 63.492 kg

DRUGS (5)
  1. FLECTOR [Suspect]
     Indication: BACK PAIN
     Dosage: 1 PATCH, Q 12 HOURS
     Route: 061
     Dates: start: 20100601, end: 20100801
  2. FLECTOR [Suspect]
     Indication: INTERVERTEBRAL DISC DISORDER
  3. MOTRIN [Concomitant]
  4. TYLENOL (CAPLET) [Concomitant]
  5. ANTIHYPERTENSIVES [Concomitant]

REACTIONS (1)
  - ALOPECIA [None]
